FAERS Safety Report 5736272-0 (Version None)
Quarter: 2008Q2

REPORT INFORMATION
  Report Type: 
  Country: None (occurrence: None)
  Receive Date: 20080509
  Receipt Date: 20080509
  Transmission Date: 20081010
  Serious: Yes (Other)
  Sender: FDA-Public Use
  Company Number: None

PATIENT
  Sex: Female
  Weight: 56.6996 kg

DRUGS (1)
  1. DIGETEX   O.25MG  ACTAVIS INS. [Suspect]
     Indication: MITRAL VALVE PROLAPSE
     Dosage: ONE TABLET  ONCE PO
     Route: 048
     Dates: start: 20001016, end: 20080501

REACTIONS (5)
  - FATIGUE [None]
  - HEART RATE DECREASED [None]
  - NAUSEA [None]
  - NERVOUS SYSTEM DISORDER [None]
  - PHARMACEUTICAL PRODUCT COMPLAINT [None]
